FAERS Safety Report 12465916 (Version 1)
Quarter: 2016Q2

REPORT INFORMATION
  Report Type: Spontaneous
  Country: US (occurrence: US)
  Receive Date: 20160614
  Receipt Date: 20160614
  Transmission Date: 20160815
  Serious: Yes (Other)
  Sender: FDA-Public Use
  Company Number: US-AMNEAL PHARMACEUTICALS-2016AMN00262

PATIENT
  Age: 58 Year
  Sex: Male
  Weight: 88.9 kg

DRUGS (3)
  1. ACETAMINOPHEN\HYDROCODONE BITARTRATE [Suspect]
     Active Substance: ACETAMINOPHEN\HYDROCODONE BITARTRATE
     Indication: PAIN
  2. CELEBREX [Concomitant]
     Active Substance: CELECOXIB
     Indication: CARPAL TUNNEL SYNDROME
     Dosage: 200 MG, 2X/DAY
     Dates: start: 200301
  3. ^PAIN MEDICATION^ [Concomitant]
     Indication: PAIN
     Dosage: UNK

REACTIONS (2)
  - Drug ineffective [Unknown]
  - Seizure [Not Recovered/Not Resolved]

NARRATIVE: CASE EVENT DATE: 201601
